FAERS Safety Report 6162105-7 (Version None)
Quarter: 2009Q2

REPORT INFORMATION
  Report Type: 
  Country: None (occurrence: None)
  Receive Date: 20090417
  Receipt Date: 20090409
  Transmission Date: 20091009
  Serious: Yes (Death)
  Sender: FDA-Public Use
  Company Number: 2008JP005854

PATIENT
  Age: 4 Year
  Sex: Male
  Weight: 17 kg

DRUGS (15)
  1. FUNGUARD (MICAFUNGIN INJECTION) FUNGUARD (MICAFUNGIN) INJECTION [Suspect]
     Indication: ANTIFUNGAL PROPHYLAXIS
     Dosage: 20 MG, /D IV DRIP
     Route: 041
     Dates: start: 20080228, end: 20080323
  2. PROGRAF [Suspect]
     Indication: STEM CELL TRANSPLANT
     Dosage: 0.24MG /D
  3. ITRACONAZOLE [Concomitant]
  4. CARBENIN (BETAMIPRON, PANIPENEM) INJECTION [Concomitant]
  5. ACICLOVIR (ACICOVIR SODIUM) INJECTION [Concomitant]
  6. TARGOCID [Concomitant]
  7. MAXIPIME [Concomitant]
  8. NEUTROGIN (LENOGRASTIM) INJECTION [Concomitant]
  9. SANGLOPOR (IMMUNOGLOBULIN) INJECTION [Concomitant]
  10. ATARAX-O (HYDROXYZINE HYDROCHLORIDE) INJECTION [Concomitant]
  11. BUPRENORPHINE HCL [Concomitant]
  12. LASIX (FUROSEMIDE) INJECTION [Concomitant]
  13. GASTER (FAMOTIDINE) INJECTION [Concomitant]
  14. NEUART (ANTITHYROMBIN III) INJECTION [Concomitant]
  15. BUSCOPAN (HYOSCINE BUTYLBROMIDE) INJECTION [Concomitant]

REACTIONS (4)
  - ABDOMINAL PAIN [None]
  - HYPERKALAEMIA [None]
  - NEUTROPENIA [None]
  - STOMATITIS [None]
